FAERS Safety Report 8773566 (Version 2)
Quarter: 2012Q4

REPORT INFORMATION
  Report Type: 
  Country: CA (occurrence: CA)
  Receive Date: 20120907
  Receipt Date: 20120917
  Transmission Date: 20130627
  Serious: Yes (Other)
  Sender: FDA-Public Use
  Company Number: PHHY2012CA077634

PATIENT
  Sex: Female

DRUGS (6)
  1. ACLASTA [Suspect]
     Indication: OSTEOPOROSIS
     Route: 042
     Dates: start: 20110705
  2. NORVASC [Concomitant]
  3. VITAMIN B12 [Concomitant]
  4. VITAMIN D [Concomitant]
  5. ATACAND [Concomitant]
  6. CALCIUM [Concomitant]

REACTIONS (1)
  - Femur fracture [Recovered/Resolved with Sequelae]
